FAERS Safety Report 18971366 (Version 1)
Quarter: 2021Q1

REPORT INFORMATION
  Report Type: Other
  Country: CA (occurrence: CA)
  Receive Date: 20210305
  Receipt Date: 20210305
  Transmission Date: 20210420
  Serious: Yes (Hospitalization)
  Sender: FDA-Public Use
  Company Number: CA-CELLTRION INC.-2021CA002559

PATIENT

DRUGS (9)
  1. APIXABAN [Concomitant]
     Active Substance: APIXABAN
  2. FERROUS FUMARATE [Concomitant]
     Active Substance: FERROUS FUMARATE
  3. VENLAFAXINE HYDROCHLORIDE. [Concomitant]
     Active Substance: VENLAFAXINE HYDROCHLORIDE
  4. BISOPROLOL [Concomitant]
     Active Substance: BISOPROLOL
  5. ALVESCO [Concomitant]
     Active Substance: CICLESONIDE
  6. BECLOMETHASONE [Concomitant]
     Active Substance: BECLOMETHASONE
  7. TRASTUZUMAB (UNKNOWN) [Suspect]
     Active Substance: TRASTUZUMAB
     Indication: PRODUCT USED FOR UNKNOWN INDICATION
  8. ROSUVASTATIN. [Concomitant]
     Active Substance: ROSUVASTATIN
  9. VENTOLIN [Concomitant]
     Active Substance: ALBUTEROL SULFATE

REACTIONS (14)
  - Weight increased [Unknown]
  - Oedema peripheral [Unknown]
  - Skin weeping [Unknown]
  - Abdominal discomfort [Unknown]
  - Depressed mood [Unknown]
  - Dyschromatopsia [Unknown]
  - Ventricular dyssynchrony [Unknown]
  - Bundle branch block [Unknown]
  - Condition aggravated [Unknown]
  - Dyspnoea [Unknown]
  - Ejection fraction decreased [Unknown]
  - Abdominal distension [Unknown]
  - Ventricular hypokinesia [Unknown]
  - Pain in extremity [Unknown]
